FAERS Safety Report 8969043 (Version 1)
Quarter: 2012Q4

REPORT INFORMATION
  Report Type: Spontaneous
  Country: US (occurrence: None)
  Receive Date: 20121214
  Receipt Date: 20121214
  Transmission Date: 20130627
  Serious: Yes (Other)
  Sender: FDA-Public Use
  Company Number: None

PATIENT
  Age: 74 Year
  Sex: Male
  Weight: 90.72 kg

DRUGS (1)
  1. CLONIDINE TABLETS 0.3 MG [Suspect]
     Indication: BLOOD PRESSURE HIGH
     Dosage: 1 tablet  2 times daily  po
     Route: 048
     Dates: start: 20121101, end: 20121201

REACTIONS (2)
  - Blood pressure increased [None]
  - Product quality issue [None]
